FAERS Safety Report 4395406-3 (Version None)
Quarter: 2004Q3

REPORT INFORMATION
  Report Type: 
  Country: None (occurrence: None)
  Receive Date: 20040707
  Receipt Date: 20040623
  Transmission Date: 20050211
  Serious: Yes (Hospitalization)
  Sender: FDA-Public Use
  Company Number: 04P-167-0257776-01

PATIENT
  Age: 56 Year
  Sex: Female
  Weight: 76 kg

DRUGS (24)
  1. HUMIRA [Suspect]
     Indication: RHEUMATOID ARTHRITIS
     Dosage: 40 MG, 1 IN 2 WK, SUBCUTANEOUS;  SUBCUTANEOUS
     Route: 058
     Dates: start: 20030506, end: 20031120
  2. HUMIRA [Suspect]
     Indication: RHEUMATOID ARTHRITIS
     Dosage: 40 MG, 1 IN 2 WK, SUBCUTANEOUS;  SUBCUTANEOUS
     Route: 058
     Dates: end: 20040323
  3. METHOTREXATE [Concomitant]
  4. HYDROXYCHLOROQUINE SULFATE [Concomitant]
  5. LEFLUNOMIDE [Concomitant]
  6. WARFARIN SODIUM [Concomitant]
  7. GLICLAZIDE [Concomitant]
  8. PREDNISOLONE [Concomitant]
  9. ASCORBIC ACID [Concomitant]
  10. FOLIC ACID [Concomitant]
  11. FUROSEMIDE [Concomitant]
  12. SALMETEROL XINAFOATE [Concomitant]
  13. BUDESONIDE [Concomitant]
  14. ACETAMINOPHEN [Concomitant]
  15. MORPHINE SULFATE [Concomitant]
  16. CELECOXIB [Concomitant]
  17. DOMPERIDONE [Concomitant]
  18. OMEPRAZOLE [Concomitant]
  19. CEFACLOR [Concomitant]
  20. FRUMIL [Concomitant]
  21. DEPRAMEDRONE [Concomitant]
  22. CEPHALEXIN [Concomitant]
  23. TRIAMCINOLONE ACETONIDE [Concomitant]
  24. ACETAMINOPHEN [Concomitant]

REACTIONS (11)
  - CHEST PAIN [None]
  - COLONIC FISTULA [None]
  - DIVERTICULUM [None]
  - DIZZINESS [None]
  - ENTEROVESICAL FISTULA [None]
  - FEMALE GENITAL-DIGESTIVE TRACT FISTULA [None]
  - GROIN ABSCESS [None]
  - HAEMATURIA [None]
  - HYPERHIDROSIS [None]
  - PALPITATIONS [None]
  - VAGINAL DISCHARGE [None]
